FAERS Safety Report 13413978 (Version 3)
Quarter: 2019Q4

REPORT INFORMATION
  Report Type: Spontaneous
  Country: US (occurrence: US)
  Receive Date: 20170406
  Receipt Date: 20191017
  Transmission Date: 20200122
  Serious: No
  Sender: FDA-Public Use
  Company Number: US-JNJFOC-20170315347

PATIENT
  Sex: Male

DRUGS (8)
  1. RISPERDAL [Suspect]
     Active Substance: RISPERIDONE
     Indication: ATTENTION DEFICIT/HYPERACTIVITY DISORDER
     Dosage: IN VARYING FREQUENCIES
     Route: 048
     Dates: start: 20081211, end: 20100409
  2. RISPERIDONE. [Suspect]
     Active Substance: RISPERIDONE
     Indication: NEGATIVISM
  3. RISPERIDONE. [Suspect]
     Active Substance: RISPERIDONE
     Indication: BEHAVIOUR DISORDER
  4. RISPERDAL [Suspect]
     Active Substance: RISPERIDONE
     Indication: NEGATIVISM
  5. RISPERDAL [Suspect]
     Active Substance: RISPERIDONE
     Indication: BEHAVIOUR DISORDER
  6. RISPERDAL [Suspect]
     Active Substance: RISPERIDONE
     Indication: ATTENTION DEFICIT/HYPERACTIVITY DISORDER
     Dosage: IN VARYING DOSES OF 0.25 MG, 0.5 MG, 1 MG IN VARYING FREQUENCIES.
     Route: 048
     Dates: start: 20051221, end: 20110912
  7. RISPERIDONE. [Suspect]
     Active Substance: RISPERIDONE
     Indication: ATTENTION DEFICIT/HYPERACTIVITY DISORDER
     Route: 048
     Dates: start: 20081211, end: 20100409
  8. RISPERDAL [Suspect]
     Active Substance: RISPERIDONE
     Indication: NEGATIVISM

REACTIONS (2)
  - Emotional distress [Unknown]
  - Gynaecomastia [Unknown]
